FAERS Safety Report 9460862 (Version 2)
Quarter: 2013Q3

REPORT INFORMATION
  Report Type: Spontaneous
  Country: JP (occurrence: JP)
  Receive Date: 20130816
  Receipt Date: 20130821
  Transmission Date: 20140515
  Serious: No
  Sender: FDA-Public Use
  Company Number: JP-AMGEN-JPNSP2013057330

PATIENT
  Sex: Female

DRUGS (1)
  1. ENBREL [Suspect]
     Indication: PRODUCT USED FOR UNKNOWN INDICATION
     Dosage: 50 MG, UNK FREQUENCY
     Route: 058
     Dates: start: 2008, end: 2013

REACTIONS (6)
  - Gingival bleeding [Unknown]
  - Pruritus [Unknown]
  - Malaise [Recovering/Resolving]
  - Knee deformity [Unknown]
  - Decreased appetite [Unknown]
  - Tooth disorder [Unknown]
